FAERS Safety Report 22636014 (Version 1)
Quarter: 2023Q2

REPORT INFORMATION
  Report Type: Other
  Country: US (occurrence: US)
  Receive Date: 20230623
  Receipt Date: 20230623
  Transmission Date: 20230722
  Serious: Yes (Other)
  Sender: FDA-Public Use
  Company Number: US-INTERCEPT-PM2023001139

PATIENT
  Sex: Male

DRUGS (1)
  1. OCALIVA [Suspect]
     Active Substance: OBETICHOLIC ACID
     Indication: Primary biliary cholangitis
     Dosage: 10 MILLIGRAM, QD
     Route: 048
     Dates: start: 20200624

REACTIONS (11)
  - Dystonia [Unknown]
  - Rheumatoid arthritis [Not Recovered/Not Resolved]
  - Urinary retention [Unknown]
  - Colitis microscopic [Unknown]
  - COVID-19 [Unknown]
  - Carpal tunnel syndrome [Not Recovered/Not Resolved]
  - Benign prostatic hyperplasia [Unknown]
  - Influenza like illness [Unknown]
  - Alopecia [Not Recovered/Not Resolved]
  - Elbow operation [Recovered/Resolved]
  - Limb operation [Recovered/Resolved]

NARRATIVE: CASE EVENT DATE: 20200101
